FAERS Safety Report 18606959 (Version 1)
Quarter: 2020Q4

REPORT INFORMATION
  Report Type: Spontaneous
  Country: US (occurrence: US)
  Receive Date: 20201211
  Receipt Date: 20201211
  Transmission Date: 20210114
  Serious: No
  Sender: FDA-Public Use
  Company Number: US-KALA PHARAMACEUTICALS-2020KLA00044

PATIENT
  Age: 74 Year
  Sex: Female
  Weight: 65.76 kg

DRUGS (5)
  1. INVELTYS [Suspect]
     Active Substance: LOTEPREDNOL ETABONATE
     Indication: CATARACT OPERATION
     Dosage: 1 DROP, 3X/DAY IN THE RIGHT EYE
     Route: 047
     Dates: start: 20200827, end: 20200916
  2. INVELTYS [Suspect]
     Active Substance: LOTEPREDNOL ETABONATE
     Dosage: 1 DROP, 3X/DAY IN THE LEFT EYE
     Route: 047
     Dates: start: 20200910, end: 20200930
  3. INVELTYS [Suspect]
     Active Substance: LOTEPREDNOL ETABONATE
     Dosage: 1 DROP, 2X/DAY IN THE LEFT EYE
     Route: 047
     Dates: start: 20201001
  4. INVELTYS [Suspect]
     Active Substance: LOTEPREDNOL ETABONATE
     Dosage: 1 DROP, 2X/DAY IN THE RIGHT EYE
     Route: 047
     Dates: start: 20200917, end: 20201008
  5. REFRESH OTC [Concomitant]

REACTIONS (3)
  - Eye pain [Recovered/Resolved]
  - Incorrect dose administered by product [Recovered/Resolved]
  - Product use complaint [Recovered/Resolved]

NARRATIVE: CASE EVENT DATE: 20200827
